FAERS Safety Report 7731700-3 (Version None)
Quarter: 2011Q3

REPORT INFORMATION
  Report Type: 
  Country: None (occurrence: None)
  Receive Date: 20110906
  Receipt Date: 20110627
  Transmission Date: 20111222
  Serious: No
  Sender: FDA-Public Use
  Company Number: US-AMGEN-USASP2011032687

PATIENT
  Age: 81 Year
  Sex: Female

DRUGS (11)
  1. METOPROLOL [Concomitant]
     Dosage: 2 MG, QD
  2. AMLODIPINE [Concomitant]
     Dosage: 1 MG, QD
  3. SIMVASTATIN [Concomitant]
     Dosage: 1 MG, QD
  4. LORATADINE [Concomitant]
     Indication: HYPERSENSITIVITY
     Dosage: 1 MG, QD
  5. OMEPRAZOLE [Concomitant]
     Dosage: 1 MG, QD
  6. ASPIRIN [Concomitant]
     Dosage: 1 MG, QD
  7. PROLIA [Suspect]
     Indication: OSTEOPENIA
     Dosage: 60 MG, Q6MO
  8. CALCIUM CARBONATE [Concomitant]
     Dosage: 4 MG, QD
  9. MULTIVITAMIN                       /00097801/ [Concomitant]
     Dosage: 1 UNK, QD
  10. FUROSEMIDE [Concomitant]
     Indication: OEDEMA PERIPHERAL
     Dosage: 1 MG, QD
     Dates: start: 20100101
  11. BENAZEPRIL HYDROCHLORIDE [Concomitant]
     Dosage: 2 MG, QD

REACTIONS (2)
  - PRURITUS [None]
  - RASH [None]
